FAERS Safety Report 24157492 (Version 1)
Quarter: 2024Q3

REPORT INFORMATION
  Report Type: Spontaneous
  Country: US (occurrence: US)
  Receive Date: 20240731
  Receipt Date: 20240731
  Transmission Date: 20241016
  Serious: No
  Sender: FRESENIUS KABI
  Company Number: US-FreseniusKabi-FK202411643

PATIENT
  Age: 73 Year
  Sex: Male

DRUGS (1)
  1. TYENNE [Suspect]
     Active Substance: TOCILIZUMAB-AAZG
     Indication: Giant cell arteritis
     Dosage: DOSE AND FREQUENCY: ASKED BUT UNKNOWN?ROUTE OF ADMIN: INTRAVENOUS INFUSION?LOT EXPIRY DATE: UNKNOWN
     Dates: start: 202407, end: 202407

REACTIONS (2)
  - Drug ineffective [Unknown]
  - Oedema [Unknown]
